FAERS Safety Report 11616815 (Version 1)
Quarter: 2015Q4

REPORT INFORMATION
  Report Type: Spontaneous
  Country: US (occurrence: US)
  Receive Date: 20151009
  Receipt Date: 20151009
  Transmission Date: 20160304
  Serious: Yes (Other)
  Sender: FDA-Public Use
  Company Number: US-BAXTER-2015BAX055062

PATIENT
  Age: 60 Year
  Sex: Male
  Weight: 85.81 kg

DRUGS (1)
  1. SUPRANE [Suspect]
     Active Substance: DESFLURANE
     Indication: ANAESTHESIA PROCEDURE
     Route: 065
     Dates: start: 20150807, end: 20150807

REACTIONS (4)
  - Mobility decreased [Unknown]
  - Anaesthetic complication [Unknown]
  - Device issue [Unknown]
  - Unwanted awareness during anaesthesia [Unknown]

NARRATIVE: CASE EVENT DATE: 20150807
